FAERS Safety Report 8552724-2 (Version None)
Quarter: 2012Q3

REPORT INFORMATION
  Report Type: 
  Country: None (occurrence: None)
  Receive Date: 20120719
  Receipt Date: 20120713
  Transmission Date: 20120928
  Serious: Yes (Death)
  Sender: FDA-Public Use
  Company Number: DSA_58501_2012

PATIENT
  Age: 91 Year
  Sex: Female

DRUGS (1)
  1. XENAZINE [Suspect]
     Indication: ILL-DEFINED DISORDER
     Dosage: 6.25 MG BID ORAL
     Route: 048
     Dates: start: 20120618, end: 20120712

REACTIONS (1)
  - DEATH [None]
